FAERS Safety Report 7575042-8 (Version None)
Quarter: 2011Q2

REPORT INFORMATION
  Report Type: 
  Country: None (occurrence: None)
  Receive Date: 20110627
  Receipt Date: 20110617
  Transmission Date: 20111010
  Serious: Yes (Hospitalization)
  Sender: FDA-Public Use
  Company Number: PHHO2011FR09721

PATIENT
  Sex: Male
  Weight: 79 kg

DRUGS (12)
  1. CELLCEPT [Concomitant]
     Indication: RENAL TRANSPLANT
     Dosage: 500 MG, BID
     Route: 048
     Dates: start: 20110224
  2. PREDNISONE [Concomitant]
     Indication: RENAL TRANSPLANT
     Dosage: 10 MG, UNK
     Route: 048
     Dates: start: 20110304
  3. BACTRIM DS [Concomitant]
  4. CALCIPARINE [Concomitant]
  5. VALACYCLOVIR [Concomitant]
  6. PREVISCAN [Concomitant]
  7. SANDIMMUNE [Suspect]
     Dosage: 2 MG, BID
     Route: 048
     Dates: start: 20110516, end: 20110614
  8. OFLOXACIN [Concomitant]
  9. SANDIMMUNE [Suspect]
     Indication: RENAL TRANSPLANT
     Dosage: 2 MG, BID
     Route: 048
     Dates: start: 20110228, end: 20110411
  10. ESOMEPRAZOLE MAGNESIUM [Concomitant]
  11. DETENSIEL [Concomitant]
  12. ALFUZOSIN HCL [Concomitant]

REACTIONS (2)
  - URETERIC ANASTOMOSIS COMPLICATION [None]
  - LYMPHOCELE [None]
